FAERS Safety Report 6439812-1 (Version None)
Quarter: 2009Q4

REPORT INFORMATION
  Report Type: 
  Country: None (occurrence: None)
  Receive Date: 20091113
  Receipt Date: 20091110
  Transmission Date: 20100525
  Serious: Yes (Hospitalization, Other)
  Sender: FDA-Public Use
  Company Number: US-B.I. PHARMACEUTICALS,INC./RIDGEFIELD-2009-BP-13138BP

PATIENT
  Age: 51 Year
  Sex: Male

DRUGS (3)
  1. SPIRIVA [Suspect]
     Indication: CHRONIC OBSTRUCTIVE PULMONARY DISEASE
     Dosage: 18 MCG
     Route: 055
     Dates: start: 20071001
  2. VICODIN [Concomitant]
     Indication: PAIN
  3. PREDNISONE [Concomitant]
     Indication: LUNG DISORDER

REACTIONS (3)
  - COCCIDIOIDOMYCOSIS [None]
  - LUNG NEOPLASM MALIGNANT [None]
  - PNEUMONIA [None]
